FAERS Safety Report 10164365 (Version 1)
Quarter: 2014Q2

REPORT INFORMATION
  Report Type: Spontaneous
  Country: US (occurrence: US)
  Receive Date: 20140510
  Receipt Date: 20140510
  Transmission Date: 20141212
  Serious: No
  Sender: FDA-Public Use
  Company Number: US-BRISTOL-MYERS SQUIBB COMPANY-19495134

PATIENT
  Age: 71 Year
  Sex: Male
  Weight: 93.87 kg

DRUGS (9)
  1. BYDUREON [Suspect]
     Route: 058
  2. JANUVIA [Concomitant]
  3. METFORMIN HCL TABS 500MG [Concomitant]
  4. LISINOPRIL [Concomitant]
  5. LOTREL [Concomitant]
     Dosage: 1DF:5/40 UNIT NOS
  6. HUMIRA [Concomitant]
  7. LIDEX [Concomitant]
     Dosage: CREAM
  8. HYDROCORTISONE [Concomitant]
     Dosage: CREAM
  9. IODOQUINOL [Concomitant]
     Dosage: CREAM

REACTIONS (2)
  - Injection site nodule [Not Recovered/Not Resolved]
  - Injection site haemorrhage [Unknown]
